FAERS Safety Report 13413343 (Version 10)
Quarter: 2019Q3

REPORT INFORMATION
  Report Type: Report from Study
  Country: ZA (occurrence: ZA)
  Receive Date: 20170407
  Receipt Date: 20190904
  Transmission Date: 20191004
  Serious: Yes (Hospitalization, Other)
  Sender: FDA-Public Use
  Company Number: PHHY2017ZA050063

PATIENT
  Sex: Female

DRUGS (9)
  1. DESFERAL [Suspect]
     Active Substance: DEFEROXAMINE MESYLATE
     Dosage: UNK (8 VIALS EVERY NIGHT)
     Route: 065
     Dates: start: 1994
  2. EXJADE [Suspect]
     Active Substance: DEFERASIROX
     Indication: THALASSAEMIA
     Dosage: 2250 MG, QD
     Route: 065
     Dates: start: 199407
  3. EXJADE [Suspect]
     Active Substance: DEFERASIROX
     Dosage: 2500 MG, UNK
     Route: 065
     Dates: start: 201807
  4. FERIPROX [Suspect]
     Active Substance: DEFERIPRONE
     Dosage: 11 DF, QD
     Route: 065
     Dates: start: 2012
  5. DESFERAL [Suspect]
     Active Substance: DEFEROXAMINE MESYLATE
     Indication: THALASSAEMIA
     Dosage: (8 VIALS EVERY SECOND NIGHT ADMINISTERED)
     Route: 065
     Dates: start: 199407
  6. SLOW K [Suspect]
     Active Substance: POTASSIUM CHLORIDE
     Indication: SUPPLEMENTATION THERAPY
     Dosage: UNK
     Route: 065
     Dates: start: 2016
  7. DESFERAL [Suspect]
     Active Substance: DEFEROXAMINE MESYLATE
     Dosage: (8 VIALS 6 X WEEK) (8 VIALS EVERY SECOND NIGHT)
     Route: 065
     Dates: start: 1994, end: 20190806
  8. LASIX [Suspect]
     Active Substance: FUROSEMIDE
     Indication: PULMONARY OEDEMA
     Dosage: UNK
     Route: 065
     Dates: start: 2016
  9. FERIPROX [Suspect]
     Active Substance: DEFERIPRONE
     Indication: THALASSAEMIA
     Dosage: 11 DF, QD
     Route: 065
     Dates: start: 1994

REACTIONS (20)
  - Malaise [Unknown]
  - Abdominal pain upper [Recovered/Resolved]
  - Nausea [Recovered/Resolved]
  - Tachycardia [Unknown]
  - Metastases to bone marrow [Unknown]
  - Skin sensitisation [Unknown]
  - Serum ferritin increased [Recovering/Resolving]
  - Eye pruritus [Unknown]
  - Photophobia [Unknown]
  - Skin cancer [Unknown]
  - Gait disturbance [Unknown]
  - Crying [Unknown]
  - Furuncle [Unknown]
  - Cutaneous T-cell lymphoma [Unknown]
  - Vomiting [Unknown]
  - Diarrhoea [Recovered/Resolved]
  - Pain [Unknown]
  - Infection [Unknown]
  - Inappropriate schedule of product administration [Unknown]
  - Product use issue [Unknown]

NARRATIVE: CASE EVENT DATE: 2015
